FAERS Safety Report 7201047-2 (Version None)
Quarter: 2010Q4

REPORT INFORMATION
  Report Type: 
  Country: None (occurrence: None)
  Receive Date: 20101229
  Receipt Date: 20101217
  Transmission Date: 20110411
  Serious: Yes (Death, Hospitalization, Other)
  Sender: FDA-Public Use
  Company Number: US-BIOGENIDEC-2010BI040472

PATIENT
  Sex: Female

DRUGS (1)
  1. TYSABRI [Suspect]
     Indication: CROHN'S DISEASE
     Route: 042
     Dates: start: 20091029, end: 20101027

REACTIONS (11)
  - CARDIAC FAILURE CONGESTIVE [None]
  - COORDINATION ABNORMAL [None]
  - DEHYDRATION [None]
  - DYSARTHRIA [None]
  - ELECTROLYTE IMBALANCE [None]
  - HIP FRACTURE [None]
  - MALNUTRITION [None]
  - MUSCULAR WEAKNESS [None]
  - PNEUMONIA [None]
  - SEPSIS [None]
  - SKIN FISSURES [None]
